FAERS Safety Report 12349408 (Version 1)
Quarter: 2016Q2

REPORT INFORMATION
  Report Type: Spontaneous
  Country: BR (occurrence: BR)
  Receive Date: 20160510
  Receipt Date: 20160510
  Transmission Date: 20160815
  Serious: Yes (Other)
  Sender: FDA-Public Use
  Company Number: BR-ROCHE-1754047

PATIENT
  Age: 47 Year
  Sex: Male

DRUGS (4)
  1. RIVOTRIL [Suspect]
     Active Substance: CLONAZEPAM
     Indication: ANXIETY
     Route: 065
     Dates: start: 2001
  2. RIVOTRIL [Suspect]
     Active Substance: CLONAZEPAM
     Route: 065
  3. RIVOTRIL [Suspect]
     Active Substance: CLONAZEPAM
     Route: 065
  4. SIMVASTATIN. [Concomitant]
     Active Substance: SIMVASTATIN
     Indication: PRODUCT USED FOR UNKNOWN INDICATION

REACTIONS (10)
  - Amnesia [Unknown]
  - Impaired reasoning [Unknown]
  - Chest pain [Unknown]
  - Underdose [Unknown]
  - Myalgia [Unknown]
  - Dysphonia [Unknown]
  - Abdominal pain [Unknown]
  - Musculoskeletal stiffness [Unknown]
  - Tremor [Unknown]
  - Blindness [Not Recovered/Not Resolved]
